FAERS Safety Report 25011809 (Version 1)
Quarter: 2025Q1

REPORT INFORMATION
  Report Type: Spontaneous
  Country: CO (occurrence: CO)
  Receive Date: 20250226
  Receipt Date: 20250226
  Transmission Date: 20250408
  Serious: Yes (Other)
  Sender: VIIV
  Company Number: CO-VIIV HEALTHCARE-CO2025021200

PATIENT

DRUGS (2)
  1. DOVATO [Suspect]
     Active Substance: DOLUTEGRAVIR SODIUM\LAMIVUDINE
     Indication: HIV infection
  2. RIFAMPIN [Concomitant]
     Active Substance: RIFAMPIN
     Indication: HIV test positive

REACTIONS (1)
  - Tuberculosis [Unknown]
